FAERS Safety Report 22131748 (Version 1)
Quarter: 2023Q1

REPORT INFORMATION
  Report Type: Spontaneous
  Country: US (occurrence: US)
  Receive Date: 20230323
  Receipt Date: 20230323
  Transmission Date: 20230418
  Serious: Yes (Other)
  Sender: FDA-Public Use
  Company Number: US-INSUD PHARMA-2303US01718

PATIENT

DRUGS (1)
  1. TESTOSTERONE [Suspect]
     Active Substance: TESTOSTERONE
     Indication: Transgender hormonal therapy
     Dosage: 0.25 MILLIGRAM, WEEKLY
     Route: 030

REACTIONS (7)
  - Idiopathic intracranial hypertension [Unknown]
  - Blindness transient [Unknown]
  - Posture abnormal [Unknown]
  - Headache [Unknown]
  - Tinnitus [Unknown]
  - Vision blurred [Unknown]
  - Papilloedema [Unknown]
